FAERS Safety Report 21948407 (Version 4)
Quarter: 2023Q1

REPORT INFORMATION
  Report Type: Report from Study
  Country: MX (occurrence: MX)
  Receive Date: 20230203
  Receipt Date: 20230318
  Transmission Date: 20230418
  Serious: Yes (Hospitalization, Other)
  Sender: FDA-Public Use
  Company Number: MX-002147023-NVSC2023MX021711

PATIENT
  Age: 34 Year
  Sex: Female
  Weight: 43 kg

DRUGS (9)
  1. MYFORTIC [Suspect]
     Active Substance: MYCOPHENOLATE SODIUM
     Indication: Renal transplant
     Dosage: 1 DOSAGE FORM, BID (BY MOUTH)
     Route: 048
     Dates: start: 200906, end: 20221215
  2. MYFORTIC [Suspect]
     Active Substance: MYCOPHENOLATE SODIUM
     Indication: Immunosuppressant drug therapy
     Dosage: UNK
     Route: 065
  3. MYCOPHENOLIC ACID [Suspect]
     Active Substance: MYCOPHENOLIC ACID
     Indication: Renal transplant
     Dosage: 1 DOSAGE FORM, BID
     Route: 048
     Dates: start: 20221215
  4. MYCOPHENOLIC ACID [Suspect]
     Active Substance: MYCOPHENOLIC ACID
     Indication: Immunosuppressant drug therapy
     Dosage: 1 DOSAGE FORM, QD
     Route: 048
  5. RAPAMUNE [Concomitant]
     Active Substance: SIROLIMUS
     Indication: Immunosuppressant drug therapy
     Dosage: 1 DOSAGE FORM, QD
     Route: 048
     Dates: start: 200906
  6. INSULIN GLARGINE [Concomitant]
     Active Substance: INSULIN GLARGINE
     Indication: Type 1 diabetes mellitus
     Dosage: 22 IU (IN THE MORNINGS)
     Route: 058
  7. INSULIN GLARGINE [Concomitant]
     Active Substance: INSULIN GLARGINE
     Dosage: 5 IU (IN EACH MEAL)
     Route: 058
  8. METOPROLOL [Concomitant]
     Active Substance: METOPROLOL
     Indication: Hypertension
     Dosage: UNK
     Route: 065
  9. NIFEDIPINE [Concomitant]
     Active Substance: NIFEDIPINE
     Indication: Hypertension
     Dosage: UNK
     Route: 065

REACTIONS (12)
  - Diarrhoea [Unknown]
  - Dehydration [Unknown]
  - Hypothyroidism [Unknown]
  - Gastric disorder [Unknown]
  - Vomiting [Unknown]
  - Abdominal pain upper [Unknown]
  - Weight decreased [Unknown]
  - Abdominal wall oedema [Unknown]
  - Fibula fracture [Unknown]
  - Hypoglycaemia [Unknown]
  - Off label use [Recovered/Resolved]
  - Product use issue [Unknown]

NARRATIVE: CASE EVENT DATE: 20090601
